FAERS Safety Report 25624262 (Version 2)
Quarter: 2025Q3

REPORT INFORMATION
  Report Type: Spontaneous
  Country: JP (occurrence: JP)
  Receive Date: 20250730
  Receipt Date: 20250801
  Transmission Date: 20251021
  Serious: Yes (Hospitalization, Other)
  Sender: MERCK SHARP & DOHME LLC
  Company Number: JP-009507513-2314139

PATIENT
  Age: 83 Year
  Sex: Male

DRUGS (5)
  1. KEYTRUDA [Suspect]
     Active Substance: PEMBROLIZUMAB
     Indication: Bile duct cancer
     Route: 041
     Dates: start: 20250710
  2. GEMCITABINE [Concomitant]
     Active Substance: GEMCITABINE
     Indication: Bile duct cancer
     Route: 042
     Dates: start: 20250710, end: 20250710
  3. GEMCITABINE [Concomitant]
     Active Substance: GEMCITABINE
     Indication: Bile duct cancer
     Route: 042
     Dates: start: 20250717, end: 20250717
  4. CISPLATIN [Concomitant]
     Active Substance: CISPLATIN
     Indication: Bile duct cancer
     Route: 042
     Dates: start: 20250710, end: 20250710
  5. CISPLATIN [Concomitant]
     Active Substance: CISPLATIN
     Indication: Bile duct cancer
     Route: 042
     Dates: start: 20250717, end: 20250717

REACTIONS (9)
  - Stevens-Johnson syndrome [Not Recovered/Not Resolved]
  - Hepatic enzyme increased [Unknown]
  - Toxic epidermal necrolysis [Not Recovered/Not Resolved]
  - Small intestine ulcer [Recovered/Resolved]
  - Skin erosion [Not Recovered/Not Resolved]
  - Inflammation [Unknown]
  - Enterocolitis [Recovered/Resolved]
  - Pyrexia [Unknown]
  - Immune-mediated enterocolitis [Recovered/Resolved]

NARRATIVE: CASE EVENT DATE: 20250101
